FAERS Safety Report 26134775 (Version 1)
Quarter: 2025Q4

REPORT INFORMATION
  Report Type: Spontaneous
  Country: US (occurrence: US)
  Receive Date: 20251209
  Receipt Date: 20251209
  Transmission Date: 20260119
  Serious: No
  Sender: AUROBINDO
  Company Number: US-AUROBINDO-AUR-APL-2025-030944

PATIENT
  Sex: Female
  Weight: 90.703 kg

DRUGS (1)
  1. MIRTAZAPINE [Suspect]
     Active Substance: MIRTAZAPINE
     Indication: Product used for unknown indication
     Dosage: UNK UNK, ONCE A DAY (ONCE AT NIGHT)

REACTIONS (4)
  - Malaise [Unknown]
  - Throat irritation [Unknown]
  - Product taste abnormal [Unknown]
  - Product odour abnormal [Unknown]
